FAERS Safety Report 10541441 (Version 1)
Quarter: 2014Q4

REPORT INFORMATION
  Report Type: Spontaneous
  Country: US (occurrence: None)
  Receive Date: 20141010
  Receipt Date: 20141010
  Transmission Date: 20150529
  Serious: No
  Sender: FDA-Public Use
  Company Number: 163-POMAL-14055603

PATIENT
  Age: 89 Year
  Sex: Female
  Weight: 56.7 kg

DRUGS (5)
  1. CHLORZOXAZONE. [Concomitant]
     Active Substance: CHLORZOXAZONE
  2. DEXAMETHASONE. [Concomitant]
     Active Substance: DEXAMETHASONE
  3. SINGULAIR [Concomitant]
     Active Substance: MONTELUKAST SODIUM
  4. POMALYST [Suspect]
     Active Substance: POMALIDOMIDE
     Indication: PLASMA CELL MYELOMA
     Dosage: 2 MG, 21 IN 21 D, PO
     Route: 048
     Dates: start: 20131030
  5. TYLENOL(PARACETAMOL) [Concomitant]

REACTIONS (2)
  - Plasma cell myeloma [None]
  - Memory impairment [None]

NARRATIVE: CASE EVENT DATE: 2013
